FAERS Safety Report 8185141-8 (Version None)
Quarter: 2012Q1

REPORT INFORMATION
  Report Type: 
  Country: None (occurrence: None)
  Receive Date: 20120305
  Receipt Date: 20120301
  Transmission Date: 20120608
  Serious: No
  Sender: FDA-Public Use
  Company Number: US-PFIZER INC-2012056674

PATIENT
  Sex: Male
  Weight: 74.376 kg

DRUGS (4)
  1. METOPROLOL [Concomitant]
     Indication: TACHYCARDIA
     Dosage: 25 MG, UNK
  2. SYNTHROID [Concomitant]
     Indication: HYPOTHYROIDISM
     Dosage: 50 UG, UNK
  3. SERTRALINE [Concomitant]
     Indication: DEPRESSION
     Dosage: 200 MG, UNK
  4. LIPITOR [Suspect]
     Indication: BLOOD CHOLESTEROL INCREASED
     Dosage: 40 MG, DAILY
     Route: 048

REACTIONS (1)
  - MUSCULAR WEAKNESS [None]
